FAERS Safety Report 16867936 (Version 1)
Quarter: 2019Q3

REPORT INFORMATION
  Report Type: Report from Study
  Country: IT (occurrence: IT)
  Receive Date: 20190930
  Receipt Date: 20190930
  Transmission Date: 20191005
  Serious: Yes (Other)
  Sender: FDA-Public Use
  Company Number: IT-ROCHE-2419277

PATIENT

DRUGS (2)
  1. RITONAVIR. [Suspect]
     Active Substance: RITONAVIR
     Indication: HIV INFECTION
     Route: 065
  2. SAQUINAVIR [Suspect]
     Active Substance: SAQUINAVIR
     Indication: HIV INFECTION
     Route: 065

REACTIONS (16)
  - Hepatotoxicity [Unknown]
  - Lip dry [Unknown]
  - Gynaecomastia [Unknown]
  - Amenorrhoea [Unknown]
  - Neurotoxicity [Unknown]
  - Nephropathy toxic [Unknown]
  - Pancreatitis [Unknown]
  - Osteonecrosis [Unknown]
  - Toxicity to various agents [Unknown]
  - Hypersensitivity [Unknown]
  - Hyperprolactinaemia [Unknown]
  - Dry skin [Unknown]
  - Psoriasis [Unknown]
  - Thrombocytopenia [Unknown]
  - Gastrointestinal toxicity [Unknown]
  - Psychotic disorder [Unknown]
